FAERS Safety Report 7919421-5 (Version None)
Quarter: 2011Q4

REPORT INFORMATION
  Report Type: 
  Country: None (occurrence: None)
  Receive Date: 20111115
  Receipt Date: 20111102
  Transmission Date: 20120403
  Serious: Yes (Other)
  Sender: FDA-Public Use
  Company Number: 1102497

PATIENT
  Age: 58 Year
  Sex: Female

DRUGS (3)
  1. KETAMINE HCL [Suspect]
     Indication: ANKLE FRACTURE
     Dosage: 70 MG SLOW PUSH OVER A MINUTE
     Dates: start: 20111030
  2. KETAMINE HCL [Suspect]
     Indication: FRACTURE REDUCTION
     Dosage: 70 MG SLOW PUSH OVER A MINUTE
     Dates: start: 20111030
  3. MIDAZOLAM [Concomitant]

REACTIONS (3)
  - APNOEA [None]
  - LARYNGOSPASM [None]
  - TRISMUS [None]
